FAERS Safety Report 13332790 (Version 2)
Quarter: 2017Q2

REPORT INFORMATION
  Report Type: Spontaneous
  Country: US (occurrence: US)
  Receive Date: 20170314
  Receipt Date: 20170417
  Transmission Date: 20170830
  Serious: No
  Sender: FDA-Public Use
  Company Number: US-ASTRAZENECA-2017SE26125

PATIENT
  Age: 24125 Day
  Sex: Male
  Weight: 132 kg

DRUGS (4)
  1. ALBUTEROL. [Concomitant]
     Active Substance: ALBUTEROL
     Dosage: THREE TIMES A DAY
  2. TUDORZA PRESSAIR [Suspect]
     Active Substance: ACLIDINIUM BROMIDE
     Indication: ASTHMA
     Route: 055
     Dates: start: 20170127
  3. MONTELUKAST [Concomitant]
     Active Substance: MONTELUKAST SODIUM
     Indication: ASTHMA
     Route: 065
  4. TUDORZA PRESSAIR [Suspect]
     Active Substance: ACLIDINIUM BROMIDE
     Indication: COUGH
     Route: 055
     Dates: start: 20170127

REACTIONS (5)
  - Off label use [Unknown]
  - Intentional product misuse [Unknown]
  - Device failure [Unknown]
  - Circumstance or information capable of leading to medication error [Unknown]
  - Cough [Unknown]

NARRATIVE: CASE EVENT DATE: 20170127
